FAERS Safety Report 12420808 (Version 2)
Quarter: 2016Q2

REPORT INFORMATION
  Report Type: Spontaneous
  Country: PE (occurrence: PE)
  Receive Date: 20160531
  Receipt Date: 20160531
  Transmission Date: 20160815
  Serious: Yes (Other)
  Sender: FDA-Public Use
  Company Number: PE-ACTAVIS-2016-11009

PATIENT
  Age: 36 Year
  Sex: Female

DRUGS (7)
  1. METRONIDAZOLE (UNKNOWN) [Suspect]
     Active Substance: METRONIDAZOLE
     Indication: SEPSIS
     Dosage: UNK
     Route: 042
  2. TIGECYCLINE. [Suspect]
     Active Substance: TIGECYCLINE
     Indication: SEPSIS
     Dosage: UNK
     Route: 042
  3. CARBOPLATIN (UNKNOWN) [Suspect]
     Active Substance: CARBOPLATIN
     Indication: OVARIAN CANCER STAGE III
     Dosage: UNK
     Route: 065
  4. PACLITAXEL (UNKNOWN) [Suspect]
     Active Substance: PACLITAXEL
     Indication: OVARIAN CANCER STAGE III
     Dosage: UNK
     Route: 065
  5. CIPROFLOXACIN HYDROCHLORIDE (UNKNOWN) [Suspect]
     Active Substance: CIPROFLOXACIN HYDROCHLORIDE
     Indication: SEPSIS
     Dosage: UNK
     Route: 065
  6. MEROPENEM (UNKNOWN) [Suspect]
     Active Substance: MEROPENEM
     Indication: SEPSIS
     Dosage: UNK
     Route: 042
  7. BEVACIZUMAB [Suspect]
     Active Substance: BEVACIZUMAB
     Indication: OVARIAN CANCER STAGE III
     Dosage: UNK
     Route: 065

REACTIONS (1)
  - Endocarditis candida [Recovered/Resolved]
